FAERS Safety Report 6403820-7 (Version None)
Quarter: 2009Q4

REPORT INFORMATION
  Report Type: 
  Country: None (occurrence: None)
  Receive Date: 20091016
  Receipt Date: 20091005
  Transmission Date: 20100525
  Serious: Yes (Life-Threatening, Hospitalization, Other)
  Sender: FDA-Public Use
  Company Number: FR-BAYER-200934710GPV

PATIENT
  Sex: Female

DRUGS (1)
  1. MIRENA [Suspect]
     Indication: DRUG USE FOR UNKNOWN INDICATION
     Route: 015

REACTIONS (9)
  - ABDOMINAL PAIN [None]
  - BETA HAEMOLYTIC STREPTOCOCCAL INFECTION [None]
  - C-REACTIVE PROTEIN INCREASED [None]
  - DEVICE RELATED INFECTION [None]
  - ENTEROCOCCAL INFECTION [None]
  - PERITONITIS [None]
  - SEPTIC SHOCK [None]
  - VAGINAL DISCHARGE [None]
  - WHITE BLOOD CELL COUNT INCREASED [None]
